FAERS Safety Report 8577701-7 (Version None)
Quarter: 2012Q3

REPORT INFORMATION
  Report Type: 
  Country: None (occurrence: None)
  Receive Date: 20120808
  Receipt Date: 20120727
  Transmission Date: 20120928
  Serious: Yes (Hospitalization)
  Sender: FDA-Public Use
  Company Number: JP-AMGEN-JPNSP2012039951

PATIENT
  Age: 81 Year
  Sex: Male

DRUGS (8)
  1. ENBREL [Suspect]
     Indication: RHEUMATOID ARTHRITIS
     Dosage: 25 MG, WEEKLY
     Route: 058
     Dates: end: 20120118
  2. ENBREL [Suspect]
     Dosage: 50 MG, WEEKLY
     Route: 058
     Dates: start: 20120119
  3. PRADAXA [Concomitant]
     Indication: CEREBRAL INFARCTION
     Dosage: UNK
     Route: 048
  4. PREDNISOLONE [Concomitant]
     Dosage: 2 MG/DAY
     Dates: start: 20120509
  5. PREDNISOLONE [Concomitant]
     Dosage: 3 MG/DAY
     Dates: start: 20120413, end: 20120508
  6. SUNRYTHM [Concomitant]
     Indication: ARRHYTHMIA
     Dosage: UNK
     Route: 048
  7. PREDNISOLONE [Concomitant]
     Dosage: 4 MG/DAY
     Dates: start: 20120223, end: 20120412
  8. METHOTREXATE [Concomitant]
     Dosage: 8 MG, WEEKLY

REACTIONS (1)
  - CEREBRAL INFARCTION [None]
